FAERS Safety Report 6820827-6 (Version None)
Quarter: 2010Q3

REPORT INFORMATION
  Report Type: 
  Country: None (occurrence: None)
  Receive Date: 20100707
  Receipt Date: 20070702
  Transmission Date: 20110219
  Serious: No
  Sender: FDA-Public Use
  Company Number: US-PFIZER INC-2007054230

PATIENT
  Sex: Female
  Weight: 51.26 kg

DRUGS (9)
  1. ZOLOFT [Suspect]
     Indication: DEPRESSION
     Route: 048
     Dates: start: 20030101
  2. ZOLOFT [Suspect]
     Indication: EATING DISORDER
  3. ALL OTHER THERAPEUTIC PRODUCTS [Concomitant]
  4. VITAMINS [Concomitant]
  5. CALCIUM CARBONATE [Concomitant]
  6. MOTRIN [Concomitant]
  7. TYLENOL [Concomitant]
  8. DIGESTIVES, INCL ENZYMES [Concomitant]
  9. LACTOSE [Concomitant]

REACTIONS (2)
  - HEADACHE [None]
  - NAUSEA [None]
